FAERS Safety Report 26174036 (Version 1)
Quarter: 2025Q4

REPORT INFORMATION
  Report Type: Spontaneous
  Country: CO (occurrence: CO)
  Receive Date: 20251218
  Receipt Date: 20251218
  Transmission Date: 20260117
  Serious: Yes (Death)
  Sender: AMGEN
  Company Number: CO-AMGEN-COLSP2025246831

PATIENT
  Age: 51 Year
  Sex: Female

DRUGS (1)
  1. BEVACIZUMAB [Suspect]
     Active Substance: BEVACIZUMAB
     Indication: Malignant oligodendroglioma
     Dosage: UNK
     Route: 065

REACTIONS (2)
  - Disease complication [Fatal]
  - Off label use [Unknown]
